FAERS Safety Report 4832817-3 (Version None)
Quarter: 2005Q4

REPORT INFORMATION
  Report Type: 
  Country: None (occurrence: None)
  Receive Date: 20051121
  Receipt Date: 20050711
  Transmission Date: 20060501
  Serious: Yes (Life-Threatening, Hospitalization, Other)
  Sender: FDA-Public Use
  Company Number: 200512315FR

PATIENT
  Age: 50 Year
  Sex: Female
  Weight: 50 kg

DRUGS (2)
  1. LANTUS [Suspect]
     Indication: SUICIDE ATTEMPT
     Route: 042
     Dates: start: 20050707, end: 20050707
  2. DEROXAT [Suspect]
     Route: 048

REACTIONS (6)
  - AMNESIA [None]
  - APRAXIA [None]
  - BRAIN DAMAGE [None]
  - HYPOGLYCAEMIC COMA [None]
  - INTENTIONAL OVERDOSE [None]
  - SUICIDE ATTEMPT [None]
